FAERS Safety Report 4608561-4 (Version None)
Quarter: 2005Q1

REPORT INFORMATION
  Report Type: 
  Country: None (occurrence: None)
  Receive Date: 20050311
  Receipt Date: 20050311
  Transmission Date: 20050727
  Serious: Yes (Life-Threatening)
  Sender: FDA-Public Use
  Company Number: None

PATIENT
  Sex: Female

DRUGS (4)
  1. HURRICAINE SPRAY [Suspect]
     Indication: ECHOCARDIOGRAM
     Dosage: 1 SPRAY  ONE TIME BUCCAL
     Route: 002
     Dates: start: 20041025, end: 20041025
  2. HURRICAINE SPRAY [Suspect]
     Indication: PREMEDICATION
     Dosage: 1 SPRAY  ONE TIME BUCCAL
     Route: 002
     Dates: start: 20041025, end: 20041025
  3. LIDOCAINE HCL VISCOUS [Suspect]
     Indication: ECHOCARDIOGRAM
     Dosage: 30 ML  ONE TIME  BUCCAL
     Route: 002
     Dates: start: 20041025, end: 20041025
  4. LIDOCAINE HCL VISCOUS [Suspect]
     Indication: PREMEDICATION
     Dosage: 30 ML  ONE TIME  BUCCAL
     Route: 002
     Dates: start: 20041025, end: 20041025

REACTIONS (3)
  - HYPOXIA [None]
  - METHAEMOGLOBINAEMIA [None]
  - PROCEDURAL COMPLICATION [None]
